FAERS Safety Report 6620457-5 (Version None)
Quarter: 2010Q1

REPORT INFORMATION
  Report Type: 
  Country: None (occurrence: None)
  Receive Date: 20100309
  Receipt Date: 20100301
  Transmission Date: 20100710
  Serious: Yes (Life-Threatening)
  Sender: FDA-Public Use
  Company Number: GXKR2010FR02465

PATIENT

DRUGS (4)
  1. ACEBUTOLOL (NGX) [Suspect]
     Dosage: 10 G, UNK
     Route: 065
  2. ACETYLSALICYLIC ACID SRT [Suspect]
     Dosage: 15 G, UNK
     Route: 065
  3. MEPROBAMATE (NGX) [Suspect]
     Dosage: 4 G, UNK
  4. ALPRAZOLAM (NGX) [Suspect]
     Dosage: 10 MG, UNK
     Route: 065

REACTIONS (4)
  - CARDIAC ARREST [None]
  - LIFE SUPPORT [None]
  - MECHANICAL VENTILATION [None]
  - OVERDOSE [None]
